FAERS Safety Report 13774427 (Version 2)
Quarter: 2017Q3

REPORT INFORMATION
  Report Type: Spontaneous
  Country: AU (occurrence: AU)
  Receive Date: 20170721
  Receipt Date: 20170726
  Transmission Date: 20171127
  Serious: Yes (Death)
  Sender: FDA-Public Use
  Company Number: AU-EISAI MEDICAL RESEARCH-EC-2017-026402

PATIENT
  Age: 75 Year
  Sex: Male

DRUGS (1)
  1. LENVIMA [Suspect]
     Active Substance: LENVATINIB
     Indication: ANAPLASTIC THYROID CANCER
     Dosage: UNKNOWN
     Route: 048
     Dates: start: 201609, end: 2017

REACTIONS (7)
  - Pneumonia aspiration [Unknown]
  - Weight decreased [Unknown]
  - Hypertension [Recovered/Resolved]
  - Tracheo-oesophageal fistula [Fatal]
  - Malnutrition [Unknown]
  - Haemorrhoids [Unknown]
  - Product use in unapproved indication [Fatal]

NARRATIVE: CASE EVENT DATE: 2017
